FAERS Safety Report 16374772 (Version 1)
Quarter: 2019Q2

REPORT INFORMATION
  Report Type: Spontaneous
  Country: US (occurrence: US)
  Receive Date: 20190530
  Receipt Date: 20190530
  Transmission Date: 20190711
  Serious: Yes (Hospitalization)
  Sender: FDA-Public Use
  Company Number: US-PRINSTON PHARMACEUTICAL INC.-2019PRN00537

PATIENT
  Age: 17 Year
  Sex: Female

DRUGS (1)
  1. CLONIDINE HYDROCHLORIDE. [Suspect]
     Active Substance: CLONIDINE HYDROCHLORIDE
     Dosage: 160 TABLETS
     Route: 048

REACTIONS (7)
  - Mental status changes [Unknown]
  - Somnolence [Unknown]
  - Systolic dysfunction [Unknown]
  - Bradycardia [Unknown]
  - Hypertension [Recovered/Resolved]
  - Pulmonary oedema [Unknown]
  - Overdose [Recovered/Resolved]
